FAERS Safety Report 9957757 (Version 1)
Quarter: 2014Q1

REPORT INFORMATION
  Report Type: Report from Study
  Country: US (occurrence: US)
  Receive Date: 20140304
  Receipt Date: 20140304
  Transmission Date: 20141002
  Serious: No
  Sender: FDA-Public Use
  Company Number: US-ABBVIE-13P-163-1095879-00

PATIENT
  Age: 35 Year
  Sex: Female

DRUGS (11)
  1. HUMIRA [Suspect]
     Indication: CROHN^S DISEASE
     Dosage: LOADING DOSE
     Route: 058
     Dates: start: 20130503, end: 20130503
  2. HUMIRA [Suspect]
     Route: 058
     Dates: start: 20130517, end: 20130517
  3. HUMIRA [Suspect]
     Route: 058
  4. LEVOTHYROXINE [Concomitant]
     Indication: HYPOTHYROIDISM
     Dosage: 75 MCG DAILY
  5. ZOFRAN [Concomitant]
     Indication: NAUSEA
  6. ELMIRON [Concomitant]
     Indication: CYSTITIS INTERSTITIAL
  7. BLADDER FLUSH OF HEPARIN, SODIUM BICARBONATE, LIDOCAINE, STERILE WATER [Concomitant]
     Indication: CYSTITIS INTERSTITIAL
     Dosage: DAILY
  8. COMBID [Concomitant]
     Indication: MIGRAINE PROPHYLAXIS
  9. BIRTH CONTROL PILL [Concomitant]
     Indication: CONTRACEPTION
     Dosage: DAILY
  10. CLARITIN [Concomitant]
     Indication: SEASONAL ALLERGY
     Dosage: DAILY
  11. TRAMADOL HCL [Concomitant]
     Indication: INSOMNIA
     Dosage: AT BEDTIME

REACTIONS (1)
  - Headache [Not Recovered/Not Resolved]
